FAERS Safety Report 7129370-0 (Version None)
Quarter: 2010Q4

REPORT INFORMATION
  Report Type: 
  Country: None (occurrence: None)
  Receive Date: 20101130
  Receipt Date: 20101124
  Transmission Date: 20110411
  Serious: Yes (Other)
  Sender: FDA-Public Use
  Company Number: US-PFIZER INC-2010157180

PATIENT
  Sex: Male
  Weight: 82.086 kg

DRUGS (4)
  1. CHANTIX [Suspect]
     Indication: SMOKING CESSATION THERAPY
     Dosage: 0.5 MG, 2X/DAY
     Route: 048
     Dates: start: 20101118, end: 20101123
  2. NIASPAN [Concomitant]
     Indication: BLOOD CHOLESTEROL INCREASED
     Dosage: 2000 MG, 1X/DAY
     Route: 048
  3. ASPIRIN [Concomitant]
     Dosage: 81 MG, 1X/DAY
     Route: 048
  4. FISH OIL [Concomitant]
     Indication: BLOOD CHOLESTEROL INCREASED
     Dosage: 900 MG, 3X/DAY
     Route: 048

REACTIONS (2)
  - HOMICIDAL IDEATION [None]
  - MOOD SWINGS [None]
